FAERS Safety Report 13579394 (Version 3)
Quarter: 2019Q2

REPORT INFORMATION
  Report Type: Report from Study
  Country: FR (occurrence: FR)
  Receive Date: 20170525
  Receipt Date: 20190527
  Transmission Date: 20190711
  Serious: Yes (Hospitalization)
  Sender: FDA-Public Use
  Company Number: FR-ROCHE-1871214

PATIENT
  Age: 70 Year
  Sex: Female
  Weight: 87 kg

DRUGS (26)
  1. PREDNISONE. [Suspect]
     Active Substance: PREDNISONE
     Indication: B-CELL LYMPHOMA
     Dosage: ON DAYS 1-5?THE DATE OF THE MOST RECENT DOSE OF PREDNISONE 100 MG PRIOR TO SAE ONSET WAS ADMINISTERE
     Route: 048
     Dates: start: 20161027
  2. KEPPRA [Concomitant]
     Active Substance: LEVETIRACETAM
     Indication: TRANSIENT ISCHAEMIC ATTACK
  3. TOPALGIC [TRAMADOL HYDROCHLORIDE] [Concomitant]
     Active Substance: TRAMADOL HYDROCHLORIDE
     Indication: PAIN
     Route: 065
     Dates: start: 20161028
  4. POLARAMINE [Concomitant]
     Active Substance: DEXCHLORPHENIRAMINE MALEATE
     Indication: PREMEDICATION
     Route: 065
     Dates: start: 20161208, end: 20161208
  5. AUGMENTIN [Concomitant]
     Active Substance: AMOXICILLIN\CLAVULANATE POTASSIUM
     Indication: CYSTITIS
     Route: 065
     Dates: start: 20161226, end: 20170104
  6. DIFFU K [Concomitant]
     Active Substance: POTASSIUM CHLORIDE
     Indication: HYPOKALAEMIA
  7. VINCRISTINE [Suspect]
     Active Substance: VINCRISTINE
     Indication: B-CELL LYMPHOMA
     Dosage: THE DATE OF THE MOST RECENT DOSE OF VINCRISTINE 2 MG PRIOR TO SAE ONSET WAS ADMINISTERED ON 08/DEC/2
     Route: 042
     Dates: start: 20161028
  8. BACTRIM [Concomitant]
     Active Substance: SULFAMETHOXAZOLE\TRIMETHOPRIM
     Route: 065
     Dates: start: 20161028
  9. GRANOCYTE [Concomitant]
     Active Substance: LENOGRASTIM
     Indication: NEUTROPENIA
     Route: 065
     Dates: start: 20161122, end: 20161126
  10. CYCLOPHOSPHAMIDE. [Suspect]
     Active Substance: CYCLOPHOSPHAMIDE
     Indication: B-CELL LYMPHOMA
     Dosage: THE DATE OF THE MOST RECENT DOSE OF CYCLOPHOSPHAMIDE 1462 MG PRIOR TO SAE ONSET WAS ADMINISTERED ON
     Route: 042
     Dates: start: 20161028
  11. PERFALGAN [Concomitant]
     Active Substance: ACETAMINOPHEN
     Route: 065
     Dates: start: 20161208, end: 20161208
  12. PARACETAMOL [Concomitant]
     Active Substance: ACETAMINOPHEN
     Indication: PREMEDICATION
     Route: 065
     Dates: start: 20170105, end: 20170105
  13. POLARAMINE [Concomitant]
     Active Substance: DEXCHLORPHENIRAMINE MALEATE
     Route: 065
     Dates: start: 20170105, end: 20170105
  14. LEDERFOLINE [Concomitant]
     Active Substance: LEUCOVORIN CALCIUM
     Route: 065
     Dates: start: 20161027
  15. ZELITREX [Concomitant]
     Active Substance: VALACYCLOVIR HYDROCHLORIDE
     Route: 065
     Dates: start: 20161026
  16. ESOMEPRAZOLE. [Concomitant]
     Active Substance: ESOMEPRAZOLE MAGNESIUM
     Indication: GASTROOESOPHAGEAL REFLUX DISEASE
     Route: 065
     Dates: start: 20161026
  17. PRIMPERAN [Concomitant]
     Active Substance: METOCLOPRAMIDE HYDROCHLORIDE
     Indication: NAUSEA
     Route: 065
     Dates: start: 20161028
  18. PRIMPERAN [Concomitant]
     Active Substance: METOCLOPRAMIDE HYDROCHLORIDE
     Indication: VOMITING
  19. GRANOCYTE [Concomitant]
     Active Substance: LENOGRASTIM
     Route: 065
     Dates: start: 20161213, end: 20161217
  20. BISOPROLOL [Concomitant]
     Active Substance: BISOPROLOL
     Indication: EXTRASYSTOLES
  21. RED BLOOD CELLS [Concomitant]
     Active Substance: HUMAN RED BLOOD CELL
     Indication: ANAEMIA
     Route: 065
     Dates: start: 20161221, end: 20161221
  22. VENETOCLAX. [Suspect]
     Active Substance: VENETOCLAX
     Indication: B-CELL LYMPHOMA
     Dosage: THE DATE OF THE MOST RECENT DOSE OF VENTOCLAX 800 MG PRIOR TO SAE ONSET WAS ADMINISTERED ON 17/DEC/2
     Route: 048
     Dates: start: 20161031
  23. RITUXIMAB. [Suspect]
     Active Substance: RITUXIMAB
     Indication: B-CELL LYMPHOMA
     Dosage: THE DATE OF THE MOST RECENT DOSE OF RITUXIMAB 730 MG PRIOR TO SAE ONSET WAS ADMINISTERED ON 08/DEC/2
     Route: 042
     Dates: start: 20161027
  24. DOXORUBICIN [Suspect]
     Active Substance: DOXORUBICIN
     Indication: B-CELL LYMPHOMA
     Dosage: THE DATE OF THE MOST RECENT DOSE OF DOXORUBICIN 97.60 MG PRIOR TO SAE ONSET WAS ADMINISTERED ON 08/D
     Route: 042
     Dates: start: 20161028
  25. INNOHEP [Concomitant]
     Active Substance: TINZAPARIN SODIUM
     Indication: PORTAL VEIN THROMBOSIS
     Route: 065
     Dates: start: 20161117, end: 20170518
  26. GRANOCYTE [Concomitant]
     Active Substance: LENOGRASTIM
     Route: 065
     Dates: start: 20161230, end: 20170101

REACTIONS (1)
  - Dyspnoea [Recovered/Resolved]

NARRATIVE: CASE EVENT DATE: 20161220
